FAERS Safety Report 7389547-6 (Version None)
Quarter: 2011Q2

REPORT INFORMATION
  Report Type: 
  Country: None (occurrence: None)
  Receive Date: 20110401
  Receipt Date: 20110321
  Transmission Date: 20111010
  Serious: Yes (Other)
  Sender: FDA-Public Use
  Company Number: PHHY2011CA21953

PATIENT
  Sex: Female

DRUGS (1)
  1. ACLASTA [Suspect]
     Indication: OSTEOPOROSIS
     Route: 042
     Dates: start: 20100503

REACTIONS (6)
  - FALL [None]
  - GAIT DISTURBANCE [None]
  - UPPER LIMB FRACTURE [None]
  - HYDROCEPHALUS [None]
  - MUSCULAR WEAKNESS [None]
  - BALANCE DISORDER [None]
